FAERS Safety Report 10642628 (Version 1)
Quarter: 2014Q4

REPORT INFORMATION
  Report Type: Spontaneous
  Country: US (occurrence: None)
  Receive Date: 20141208
  Receipt Date: 20141208
  Transmission Date: 20150529
  Serious: Yes (Hospitalization)
  Sender: FDA-Public Use
  Company Number: None

PATIENT
  Age: 49 Year
  Sex: Female
  Weight: 72.58 kg

DRUGS (2)
  1. DEXAMETHAZONE [Suspect]
     Active Substance: DEXAMETHASONE
     Indication: MIGRAINE
     Dosage: 5MG, TWICE DAILY, TAKEN BY MOUTH
     Route: 048
     Dates: start: 20141115, end: 20141123
  2. PROMETHAZINE [Suspect]
     Active Substance: PROMETHAZINE\PROMETHAZINE HYDROCHLORIDE
     Indication: HEADACHE
     Dosage: 1 PILL, EVERY 4-6 HOURS, TAKEN BY MOUTH
     Route: 048
     Dates: start: 20141121, end: 20141123

REACTIONS (9)
  - Mental status changes [None]
  - Vomiting [None]
  - Sedation [None]
  - Malaise [None]
  - Feeling of body temperature change [None]
  - Drug effect decreased [None]
  - Hyperhidrosis [None]
  - Nausea [None]
  - Cataplexy [None]

NARRATIVE: CASE EVENT DATE: 20141126
